FAERS Safety Report 8470534-1 (Version None)
Quarter: 2012Q2

REPORT INFORMATION
  Report Type: 
  Country: None (occurrence: None)
  Receive Date: 20120627
  Receipt Date: 20120616
  Transmission Date: 20120825
  Serious: Yes (Hospitalization, Other)
  Sender: FDA-Public Use
  Company Number: US-ELI_LILLY_AND_COMPANY-US201204002548

PATIENT
  Sex: Male
  Weight: 91.156 kg

DRUGS (22)
  1. ASPIRIN [Concomitant]
     Dosage: 325 MG, QD
     Dates: start: 20071025
  2. ASPIRIN [Concomitant]
     Dosage: 81 MG, QD
  3. LIPITOR [Concomitant]
     Indication: HYPERLIPIDAEMIA
     Dosage: 80 MG, QD
     Route: 048
     Dates: start: 20100928
  4. CARVEDILOL [Concomitant]
     Indication: CARDIAC FAILURE
     Dosage: 3.125 MG, BID
     Route: 048
     Dates: start: 20100913, end: 20110829
  5. ALTACE [Concomitant]
     Indication: HYPERTENSION
     Dosage: 5 MG, QD
     Route: 048
     Dates: start: 20110829
  6. CARVEDILOL [Concomitant]
     Dosage: 6.25 MG, BID
     Route: 048
     Dates: start: 20110829
  7. AMLODIPINE [Concomitant]
     Indication: HYPERTENSION
     Dosage: 10 MG, QD
     Route: 048
     Dates: start: 20111105
  8. METOLAZONE [Concomitant]
     Indication: HYPERTENSION
     Dosage: 40 MG, QD
     Route: 048
     Dates: start: 20111018
  9. AMIODARONE HYDROCHLORIDE [Concomitant]
     Dosage: 200 MG, BID
  10. PLAVIX [Concomitant]
     Dosage: 75 MG, QD
  11. PRASUGREL HYDROCHLORIDE [Suspect]
     Indication: ACUTE CORONARY SYNDROME
     Dosage: 10 MG, QD
     Dates: start: 20100901, end: 20110829
  12. ASPIRIN [Concomitant]
     Dosage: 325 MG, SINGLE
     Dates: start: 20100901, end: 20100901
  13. CARVEDILOL [Concomitant]
     Dosage: 3.125 MG, BID
     Route: 048
     Dates: start: 20111018
  14. LASIX [Concomitant]
     Indication: HYPERTENSION
     Dosage: 40 MG, QD
     Route: 048
     Dates: start: 20111001
  15. ASPIRIN [Concomitant]
     Dosage: 325 MG, QD
  16. SPIRONOLACTONE [Concomitant]
     Indication: HYPERTENSION
     Dosage: 12.5 MG, BID
     Route: 048
     Dates: start: 20111018
  17. CLONIDINE [Concomitant]
     Indication: HYPERTENSION
     Dosage: 0.33 MG, TID
     Route: 048
     Dates: start: 20110617
  18. PLAVIX [Concomitant]
     Indication: ANTIPLATELET THERAPY
     Dosage: 75 MG, QD
     Route: 048
     Dates: start: 20110829, end: 20120402
  19. ASPIRIN [Concomitant]
     Dosage: 81 MG, QD
  20. LANTUS [Concomitant]
     Dosage: 30 DF, QD
     Route: 058
     Dates: start: 20111018
  21. AMIODARONE HYDROCHLORIDE [Concomitant]
     Indication: ARRHYTHMIA PROPHYLAXIS
     Dosage: 100 MG, BID
     Route: 048
     Dates: start: 20111105
  22. LANTUS [Concomitant]
     Indication: DIABETES MELLITUS
     Dosage: 60 OTHER, OTHER
     Route: 050
     Dates: start: 20080101, end: 20110101

REACTIONS (10)
  - RENAL FAILURE ACUTE [None]
  - DEPRESSION [None]
  - VENTRICULAR TACHYCARDIA [None]
  - STAPHYLOCOCCAL SEPSIS [None]
  - HAEMATURIA [None]
  - HAEMATOCRIT DECREASED [None]
  - DEEP VEIN THROMBOSIS [None]
  - URINARY RETENTION [None]
  - CARDIAC FAILURE [None]
  - HAEMOGLOBIN DECREASED [None]
